FAERS Safety Report 8226291-7 (Version None)
Quarter: 2012Q1

REPORT INFORMATION
  Report Type: 
  Country: None (occurrence: None)
  Receive Date: 20120321
  Receipt Date: 20120319
  Transmission Date: 20120608
  Serious: Yes (Other)
  Sender: FDA-Public Use
  Company Number: US-MERCK-1201USA01937

PATIENT
  Age: 34 Year
  Sex: Female
  Weight: 76 kg

DRUGS (2)
  1. FOSAPREPITANT DIMEGLUMINE [Suspect]
     Indication: PROPHYLAXIS OF NAUSEA AND VOMITING
     Route: 041
     Dates: start: 20111223, end: 20120106
  2. TAXOL [Suspect]
     Route: 065
     Dates: start: 20111223

REACTIONS (12)
  - UNRESPONSIVE TO STIMULI [None]
  - SOMNOLENCE [None]
  - CYANOSIS [None]
  - DRUG HYPERSENSITIVITY [None]
  - FEELING HOT [None]
  - INFUSION SITE REACTION [None]
  - SYNCOPE [None]
  - LETHARGY [None]
  - HYPOTENSION [None]
  - ERYTHEMA [None]
  - URINARY INCONTINENCE [None]
  - PULSE ABSENT [None]
